FAERS Safety Report 7496167-1 (Version None)
Quarter: 2011Q2

REPORT INFORMATION
  Report Type: 
  Country: None (occurrence: None)
  Receive Date: 20110523
  Receipt Date: 20110513
  Transmission Date: 20111010
  Serious: Yes (Hospitalization)
  Sender: FDA-Public Use
  Company Number: PHHY2011TR41244

PATIENT
  Age: 56 Year
  Sex: Female

DRUGS (2)
  1. ANALGESICS [Concomitant]
  2. ACLASTA [Suspect]
     Dosage: 5 MG, UNK
     Route: 042

REACTIONS (5)
  - BLOOD UREA INCREASED [None]
  - PYREXIA [None]
  - MYALGIA [None]
  - FATIGUE [None]
  - TACHYCARDIA [None]
